FAERS Safety Report 4824984-2 (Version None)
Quarter: 2005Q4

REPORT INFORMATION
  Report Type: 
  Country: None (occurrence: None)
  Receive Date: 20051109
  Receipt Date: 20051109
  Transmission Date: 20060501
  Serious: Yes (Life-Threatening)
  Sender: FDA-Public Use
  Company Number: None

PATIENT
  Age: 23 Year
  Sex: Male

DRUGS (2)
  1. FENTANYL [Suspect]
     Indication: PAIN
     Dosage: 50MCG/HR PATCH   Q72H   TOP
     Route: 061
  2. WARFARIN     10MG [Suspect]
     Indication: THROMBOSIS PROPHYLAXIS
     Dosage: 10MG   DAILY   PO
     Route: 048

REACTIONS (5)
  - ACUTE RESPIRATORY FAILURE [None]
  - ANAEMIA [None]
  - INCORRECT DOSE ADMINISTERED [None]
  - INTERNATIONAL NORMALISED RATIO INCREASED [None]
  - LOSS OF CONSCIOUSNESS [None]
